FAERS Safety Report 8574272 (Version 2)
Quarter: 2013Q4

REPORT INFORMATION
  Report Type: Spontaneous
  Country: US (occurrence: US)
  Receive Date: 20120522
  Receipt Date: 20131001
  Transmission Date: 20140711
  Serious: Yes (Death)
  Sender: FDA-Public Use
  Company Number: US-ALEXION PHARMACEUTICALS INC.-A201200932

PATIENT
  Age: 11 Day
  Sex: Male

DRUGS (2)
  1. SOLIRIS 300MG [Suspect]
     Indication: HAEMOLYTIC URAEMIC SYNDROME
     Dosage: 300 MG, UNK
     Route: 042
     Dates: start: 20120430
  2. SOLIRIS 300MG [Suspect]
     Dosage: 150 MG, UNK
     Route: 042
     Dates: start: 20120505, end: 20120505

REACTIONS (5)
  - Periventricular leukomalacia [Fatal]
  - Blood creatinine increased [Unknown]
  - Blood lactate dehydrogenase increased [Unknown]
  - Fluid retention [Unknown]
  - Platelet count decreased [Unknown]
